FAERS Safety Report 10213380 (Version 1)
Quarter: 2014Q2

REPORT INFORMATION
  Report Type: Spontaneous
  Country: GB (occurrence: GB)
  Receive Date: 20140603
  Receipt Date: 20140603
  Transmission Date: 20141212
  Serious: Yes (Hospitalization)
  Sender: FDA-Public Use
  Company Number: GB-PERRIGO-14GB005439

PATIENT
  Age: 28 Year
  Sex: Female
  Weight: 84 kg

DRUGS (17)
  1. ACETAMINOPHEN 650MG ER 544 [Suspect]
     Indication: BACK PAIN
     Dosage: UNK
     Route: 048
  2. ACETAMINOPHEN 650MG ER 544 [Suspect]
     Indication: STRESS
     Dosage: 1 G, SINGLE
  3. ACETAMINOPHEN 650MG ER 544 [Suspect]
     Indication: ANAESTHESIA
     Dosage: 1 POSTOPERATIVE DOSE
     Route: 065
  4. CO-CODAMOL [Suspect]
     Indication: BACK PAIN
     Dosage: UNK
     Route: 048
  5. CO-CODAMOL [Suspect]
     Indication: STRESS
  6. ENOXAPARIN [Concomitant]
     Indication: PULMONARY EMBOLISM
     Dosage: 80 MG, BID
     Route: 065
  7. ENOXAPARIN [Concomitant]
     Dosage: 80 MG, SINGLE
     Route: 065
  8. THIOPENTAL [Concomitant]
     Indication: ANAESTHESIA
     Dosage: 500 MG, SINGLE
     Route: 065
  9. ALFENTANIL [Concomitant]
     Indication: ANAESTHESIA
     Dosage: 1 MG, SINGLE
     Route: 065
  10. SUXAMETHONIUM [Concomitant]
     Indication: ANAESTHESIA
     Dosage: 100 MG, SINGLE
     Route: 065
  11. ROCURONIUM [Concomitant]
     Indication: ANAESTHESIA
     Dosage: 40 MG, SINGLE
     Route: 065
  12. MORPHINE [Concomitant]
     Indication: ANAESTHESIA
     Dosage: 10 MG, SINGLE
     Route: 042
  13. CO-AMOXICLAV                       /00756801/ [Concomitant]
     Indication: PRODUCT USED FOR UNKNOWN INDICATION
     Dosage: 1.2 GM SINGLE
     Route: 065
  14. OXYTOCIN [Concomitant]
     Indication: PRODUCT USED FOR UNKNOWN INDICATION
     Dosage: 5 UNITS, SINGLE
     Route: 040
  15. OXYTOCIN [Concomitant]
     Dosage: 40 UNITS OVER 4 HOURS
     Route: 042
  16. HARTMANN                           /00490001/ [Concomitant]
     Indication: PRODUCT USED FOR UNKNOWN INDICATION
     Dosage: 2 L, SINGLE
     Route: 042
  17. LEVOBUPIVACAINE [Concomitant]
     Indication: POSTOPERATIVE ANALGESIA
     Dosage: 40 ML, UNK
     Route: 050

REACTIONS (9)
  - Overdose [Recovered/Resolved]
  - Platelet count decreased [Unknown]
  - Hepatic function abnormal [Unknown]
  - Tachycardia [Unknown]
  - Malaise [Unknown]
  - Nausea [Unknown]
  - Vomiting [Unknown]
  - Abdominal pain upper [Unknown]
  - Somnolence [Unknown]
